FAERS Safety Report 11062591 (Version 2)
Quarter: 2015Q2

REPORT INFORMATION
  Report Type: Spontaneous
  Country: US (occurrence: US)
  Receive Date: 20150424
  Receipt Date: 20150522
  Transmission Date: 20150821
  Serious: Yes (Other)
  Sender: FDA-Public Use
  Company Number: CHPA2015US005256

PATIENT
  Sex: Female

DRUGS (16)
  1. ADVIL [Concomitant]
     Active Substance: IBUPROFEN
     Indication: PRODUCT USED FOR UNKNOWN INDICATION
     Dosage: UNK
     Route: 065
  2. APTIOM [Concomitant]
     Active Substance: ESLICARBAZEPINE ACETATE
     Indication: PRODUCT USED FOR UNKNOWN INDICATION
     Dosage: UNK
     Route: 065
  3. ROBITUSSIN MULTI SYMPTOM COLD [Concomitant]
     Indication: RESPIRATORY TRACT CONGESTION
     Dosage: 4-10ML EVERY 4-6 HOURS
     Route: 065
     Dates: start: 201412
  4. DAYQUIL COUGH [Concomitant]
     Indication: SEASONAL ALLERGY
     Dosage: 1 DF, Q4H
     Route: 065
     Dates: start: 2000
  5. PSEUDOEPHEDRINE [Suspect]
     Active Substance: PSEUDOEPHEDRINE
     Indication: PRODUCT USED FOR UNKNOWN INDICATION
     Route: 065
  6. VICKS NYQUIL [Concomitant]
     Active Substance: ACETAMINOPHEN\DEXTROMETHORPHAN HYDROBROMIDE\DOXYLAMINE SUCCINATE
     Indication: INSOMNIA
  7. TOPAMAX [Concomitant]
     Active Substance: TOPIRAMATE
     Indication: SEIZURE
     Dosage: 100 MG, UNK
     Route: 065
     Dates: start: 1988, end: 20150304
  8. VIMPAT [Concomitant]
     Active Substance: LACOSAMIDE
     Indication: PRODUCT USED FOR UNKNOWN INDICATION
     Dosage: UNK MG, UNK
     Route: 065
  9. ACETAMINOPHEN. [Concomitant]
     Active Substance: ACETAMINOPHEN
     Indication: HEADACHE
     Dosage: 1-2 DF
     Route: 065
  10. VICKS NYQUIL [Concomitant]
     Active Substance: ACETAMINOPHEN\DEXTROMETHORPHAN HYDROBROMIDE\DOXYLAMINE SUCCINATE
     Indication: ANTITUSSIVE THERAPY
     Dosage: 10 OR 20MG AT NIGHT (ONCE)
     Dates: start: 201412
  11. ROBITUSSIN COUGH + CHEST CONGESTION [Concomitant]
     Indication: PRODUCTIVE COUGH
     Dosage: 10 MG, QID
     Route: 065
     Dates: start: 201402
  12. TOPAMAX [Concomitant]
     Active Substance: TOPIRAMATE
     Dosage: 400 MG, QHS
  13. CLOBAZAM [Concomitant]
     Active Substance: CLOBAZAM
     Indication: PRODUCT USED FOR UNKNOWN INDICATION
     Dosage: UNK
     Route: 065
     Dates: start: 200003
  14. ROBITUSSIN COUGH + CHEST CONGESTION [Concomitant]
     Indication: COUGH
  15. HYDROCHLORIDE B1 [Concomitant]
     Indication: PRODUCT USED FOR UNKNOWN INDICATION
     Route: 065
  16. TOPAMAX [Concomitant]
     Active Substance: TOPIRAMATE
     Dosage: 300 MG, IN THE MORNING

REACTIONS (7)
  - Aura [Recovered/Resolved]
  - Nasopharyngitis [Not Recovered/Not Resolved]
  - Nasal congestion [Not Recovered/Not Resolved]
  - Increased upper airway secretion [Unknown]
  - Rhinorrhoea [Not Recovered/Not Resolved]
  - Seizure [Not Recovered/Not Resolved]
  - Cough [Not Recovered/Not Resolved]

NARRATIVE: CASE EVENT DATE: 2005
